FAERS Safety Report 7227115-7 (Version None)
Quarter: 2011Q1

REPORT INFORMATION
  Report Type: 
  Country: None (occurrence: None)
  Receive Date: 20110114
  Receipt Date: 20110106
  Transmission Date: 20110831
  Serious: Yes (Other)
  Sender: FDA-Public Use
  Company Number: US-PFIZER INC-2011004341

PATIENT
  Sex: Male
  Weight: 79.8 kg

DRUGS (6)
  1. WELLBUTRIN [Concomitant]
     Dosage: 300 MG, UNK
  2. ARFORMOTEROL INHALED [Interacting]
     Indication: ASTHMA
     Dosage: UNK
  3. ALBUTEROL [Interacting]
     Indication: ASTHMA
     Dosage: UNK
  4. PROLIXIN [Concomitant]
     Dosage: 10 MG, UNK
  5. SPIRIVA [Interacting]
     Indication: ASTHMA
     Dosage: UNK
  6. CHANTIX [Suspect]
     Indication: SMOKING CESSATION THERAPY
     Dosage: 0.5 MG, DAILY
     Route: 048
     Dates: start: 20110106

REACTIONS (2)
  - DYSPNOEA [None]
  - DRUG INTERACTION [None]
